FAERS Safety Report 4490511-5 (Version None)
Quarter: 2004Q4

REPORT INFORMATION
  Report Type: 
  Country: None (occurrence: None)
  Receive Date: 20041028
  Receipt Date: 20041011
  Transmission Date: 20050328
  Serious: Yes (Hospitalization)
  Sender: FDA-Public Use
  Company Number: DSA_24873_2004

PATIENT
  Age: 73 Year
  Sex: Female
  Weight: 79.9 kg

DRUGS (23)
  1. ISORDIL [Suspect]
     Indication: CORONARY ARTERY DISEASE
     Dosage: 20 MG TID PO
     Route: 048
  2. NATRECOR [Suspect]
     Dosage: DF
  3. DIGOXIN [Suspect]
     Indication: CARDIAC DISORDER
     Dosage: 0.125 MG QOD PO
     Route: 048
  4. ALDACTONE [Suspect]
     Indication: CARDIAC DISORDER
     Dosage: 12.5 MG QD PO
     Route: 048
  5. HYDRALAZINE [Suspect]
     Indication: CARDIAC DISORDER
     Dosage: 50 MG TID PO
     Route: 048
  6. METOPROLOL [Suspect]
     Indication: CARDIAC DISORDER
     Dosage: 100 MG BID PO
     Route: 048
  7. COUMADIN [Suspect]
     Indication: COAGULOPATHY
     Dosage: 3 MG QD PO
     Route: 048
  8. ASPIRIN [Suspect]
     Indication: CORONARY ARTERY DISEASE
     Dosage: 81 MG Q DAY PO
     Route: 048
  9. AMITRIPTYLINE HCL [Concomitant]
  10. LIPITOR [Concomitant]
  11. TUMS [Concomitant]
  12. FIBERCON [Concomitant]
  13. COLACE [Concomitant]
  14. LEXAPRO [Concomitant]
  15. PREMARIN [Concomitant]
  16. ZANTAC [Concomitant]
  17. INSULIN [Concomitant]
  18. NOVOLOG [Concomitant]
  19. NITROGLYCERIN ^A.L^ [Concomitant]
  20. AMOXICILLIN [Concomitant]
  21. TRAZODONE HCL [Concomitant]
  22. PROTONIX [Concomitant]
  23. TYLENOL [Concomitant]

REACTIONS (23)
  - ABDOMINAL PAIN [None]
  - ASCITES [None]
  - ATELECTASIS [None]
  - BACK PAIN [None]
  - BLOOD CREATININE INCREASED [None]
  - BLOOD PRESSURE DIASTOLIC DECREASED [None]
  - BLOOD SODIUM DECREASED [None]
  - BLOOD UREA INCREASED [None]
  - BODY TEMPERATURE DECREASED [None]
  - CARDIAC FAILURE CONGESTIVE [None]
  - CARDIOMEGALY [None]
  - CONDITION AGGRAVATED [None]
  - DECREASED APPETITE [None]
  - FAECAL INCONTINENCE [None]
  - GASTROINTESTINAL HAEMORRHAGE [None]
  - HEPATIC CIRRHOSIS [None]
  - NAUSEA [None]
  - PANCREATITIS ACUTE [None]
  - PLEURAL EFFUSION [None]
  - PULMONARY HYPERTENSION [None]
  - RECTAL HAEMORRHAGE [None]
  - RESPIRATORY RATE INCREASED [None]
  - SPLENOMEGALY [None]
